FAERS Safety Report 5157382-5 (Version None)
Quarter: 2006Q4

REPORT INFORMATION
  Report Type: 
  Country: None (occurrence: None)
  Receive Date: 20061127
  Receipt Date: 20061116
  Transmission Date: 20070319
  Serious: Yes (Other)
  Sender: FDA-Public Use
  Company Number: DE-GLAXOSMITHKLINE-B0446831A

PATIENT
  Sex: Female

DRUGS (1)
  1. DR. BEST ZAHNWEISS [Suspect]
     Indication: DENTAL CLEANING

REACTIONS (4)
  - DYSPHAGIA [None]
  - HYPERSENSITIVITY [None]
  - LIP BLISTER [None]
  - ORAL MUCOSAL BLISTERING [None]
